FAERS Safety Report 22389141 (Version 1)
Quarter: 2023Q2

REPORT INFORMATION
  Report Type: Spontaneous
  Country: GB (occurrence: GB)
  Receive Date: 20230531
  Receipt Date: 20230531
  Transmission Date: 20230722
  Serious: Yes (Disabling)
  Sender: FDA-Public Use
  Company Number: GB-3M Pharmaceuticals-19177

PATIENT
  Age: 74 Year
  Sex: Male

DRUGS (16)
  1. ATORVASTATIN [Suspect]
     Active Substance: ATORVASTATIN
     Indication: Ill-defined disorder
     Dosage: 10 MILLIGRAM, 1 DOSE, 10 MILLIGRAM, QD, (PM)
     Route: 065
  2. WARFARIN [Suspect]
     Active Substance: WARFARIN
     Indication: Ill-defined disorder
     Dosage: UNK, 1-3,BID
     Route: 065
  3. AMLODIPINE [Suspect]
     Active Substance: AMLODIPINE BESYLATE
     Indication: Ill-defined disorder
     Dosage: 10 MILLIGRAM, 1 DOSE, 10 MILLIGRAM, QD, (AM
     Route: 048
  4. BENDROFLUMETHIAZIDE [Suspect]
     Active Substance: BENDROFLUMETHIAZIDE
     Indication: Ill-defined disorder
     Dosage: 2.5 MILLIGRAM, 1 DOSE, 2.5 MILLIGRAM, QD, (AM)
     Route: 065
  5. ISOSORBIDE DINITRATE [Suspect]
     Active Substance: ISOSORBIDE DINITRATE
     Indication: Ill-defined disorder
     Dosage: UNK, DAILY
     Route: 065
  6. DIGOXIN [Suspect]
     Active Substance: DIGOXIN
     Indication: Ill-defined disorder
     Dosage: 125 MICROGRAM
     Route: 005
  7. ISOSORBIDE MONONITRATE [Suspect]
     Active Substance: ISOSORBIDE MONONITRATE
     Indication: Ill-defined disorder
     Dosage: 60 MILLIGRAM, 1 DOSE, 60 MILLIGRAM, QD, (AM)
     Route: 048
  8. LACTULOSE [Suspect]
     Active Substance: LACTULOSE
     Indication: Ill-defined disorder
     Dosage: 3.35 G/5 ML TAKEN TWICE DAILY
     Route: 048
  9. ACETAMINOPHEN [Suspect]
     Active Substance: ACETAMINOPHEN
     Indication: Ill-defined disorder
     Dosage: UNK
     Route: 065
  10. ACETAMINOPHEN [Suspect]
     Active Substance: ACETAMINOPHEN
     Dosage: 2 DOSAGE FORM, QID,(2 DF, QID)
     Route: 065
  11. ALBUTEROL [Suspect]
     Active Substance: ALBUTEROL
     Indication: Ill-defined disorder
     Dosage: 100 MICROGRAM
     Route: 055
  12. ALBUTEROL [Suspect]
     Active Substance: ALBUTEROL
     Dosage: 100 MICROGRAM
     Route: 055
  13. ALBUTEROL SULFATE [Suspect]
     Active Substance: ALBUTEROL SULFATE
     Indication: Ill-defined disorder
     Dosage: UNK, DAILY
     Route: 065
  14. THEOPHYLLINE [Suspect]
     Active Substance: THEOPHYLLINE
     Indication: Chronic obstructive pulmonary disease
     Dosage: 250 MILLIGRAM, BID, (TWICE DAILY)
     Route: 048
     Dates: start: 20011126, end: 20011211
  15. TRANDOLAPRIL [Suspect]
     Active Substance: TRANDOLAPRIL
     Indication: Ill-defined disorder
     Dosage: 2 MILLIGRAM, QD, (AM)
     Route: 065
  16. ISOSORBIDE [Suspect]
     Active Substance: ISOSORBIDE
     Indication: Product used for unknown indication
     Route: 065

REACTIONS (1)
  - Depression suicidal [Recovered/Resolved]

NARRATIVE: CASE EVENT DATE: 20011128
